FAERS Safety Report 8143812-3 (Version None)
Quarter: 2012Q1

REPORT INFORMATION
  Report Type: 
  Country: None (occurrence: None)
  Receive Date: 20120217
  Receipt Date: 20120213
  Transmission Date: 20120608
  Serious: Yes (Other)
  Sender: FDA-Public Use
  Company Number: US-PFIZER INC-2012039637

PATIENT
  Sex: Female
  Weight: 92.063 kg

DRUGS (9)
  1. SUMATRIPTAN [Suspect]
     Indication: MIGRAINE
     Dosage: 50 MG, UNK
     Dates: start: 20120125, end: 20120125
  2. ZONEGRAN [Concomitant]
     Dosage: UNK
  3. DILANTIN-125 [Suspect]
     Dosage: UNK
  4. NEURONTIN [Concomitant]
     Dosage: UNK
  5. SUMATRIPTAN SUCCINATE [Interacting]
     Indication: MIGRAINE
     Dosage: 6 MG, UNK
     Route: 029
     Dates: start: 20110125, end: 20110125
  6. TEMAZEPAM [Concomitant]
     Dosage: UNK
  7. LEXAPRO [Interacting]
     Indication: ANXIETY
     Dosage: 20 MG, 1X/DAY
     Route: 048
  8. MULTI-VITAMINS [Concomitant]
     Dosage: UNK
  9. FAMOTIDINE [Concomitant]
     Dosage: UNK

REACTIONS (12)
  - MYOCARDIAL INFARCTION [None]
  - DYSPNOEA [None]
  - CHEST DISCOMFORT [None]
  - NAUSEA [None]
  - CONVULSION [None]
  - DRUG INTERACTION [None]
  - TREMOR [None]
  - THROAT TIGHTNESS [None]
  - PRURITUS GENERALISED [None]
  - FEELING ABNORMAL [None]
  - DRY MOUTH [None]
  - ORAL DISCOMFORT [None]
